FAERS Safety Report 8439460 (Version 4)
Quarter: 2012Q4

REPORT INFORMATION
  Report Type: 
  Country: JP (occurrence: JP)
  Receive Date: 20120302
  Receipt Date: 20120914
  Transmission Date: 20130627
  Serious: Yes (Hospitalization, Other)
  Sender: FDA-Public Use
  Company Number: PHHY2010JP88350

PATIENT
  Age: 80 Year
  Sex: Male
  Weight: 44 kg

DRUGS (16)
  1. EXJADE [Suspect]
     Indication: IRON OVERLOAD
     Dosage: 875 mg, daily
     Route: 048
     Dates: start: 20090624, end: 20090722
  2. EXJADE [Suspect]
     Indication: MYELOFIBROSIS
     Dosage: 875 mg, daily
     Route: 048
     Dates: start: 20090729, end: 20090912
  3. EXJADE [Suspect]
     Dosage: 875 mg, daily
     Route: 048
     Dates: start: 20091007, end: 20091224
  4. EXJADE [Suspect]
     Dosage: 20 mg/kg, UNK
     Route: 048
  5. EXJADE [Suspect]
     Dosage: 20 mg/kg, UNK
     Route: 048
     Dates: end: 201007
  6. LASIX [Concomitant]
     Dosage: 20 mg, UNK
     Route: 048
     Dates: start: 20090624, end: 20091224
  7. LASIX [Concomitant]
     Dosage: 20 mg, UNK
     Route: 048
  8. PREDNISOLONE [Concomitant]
     Dosage: 10 mg, UNK
     Route: 048
     Dates: start: 20090624, end: 20091224
  9. MUCOSTA [Concomitant]
     Dosage: 300 mg, UNK
     Route: 048
     Dates: start: 20090624, end: 20090911
  10. MAGNESIUM OXIDE [Concomitant]
     Dosage: 3 g, UNK
     Route: 048
     Dates: start: 20090708, end: 20090911
  11. PRIMPERAN [Concomitant]
     Dosage: 3 DF, UNK
     Route: 048
     Dates: start: 20090812, end: 20090911
  12. SITAFLOXACIN HYDRATE [Concomitant]
     Dosage: 100 mg, UNK
     Route: 048
     Dates: start: 20090916, end: 20090928
  13. URIEF [Concomitant]
     Dosage: 8 DF, UNK
     Route: 048
     Dates: start: 20090924, end: 20091007
  14. PHENOBAL [Concomitant]
     Dosage: UNK UKN, UNK
     Route: 048
     Dates: start: 20091001, end: 20091007
  15. ALEVIATIN [Concomitant]
     Dosage: 150 mg, UNK
     Route: 048
     Dates: start: 20091001, end: 20091007
  16. TAKEPRON [Concomitant]
     Dosage: 15 mg, UNK
     Route: 048
     Dates: start: 20091001, end: 20091224

REACTIONS (6)
  - Urinary tract infection [Recovering/Resolving]
  - Pneumonia [Recovered/Resolved]
  - White blood cell count increased [Unknown]
  - Nausea [Recovering/Resolving]
  - Diarrhoea [Recovered/Resolved]
  - Hypotension [Recovered/Resolved]
